FAERS Safety Report 7753055-0 (Version None)
Quarter: 2011Q3

REPORT INFORMATION
  Report Type: 
  Country: None (occurrence: None)
  Receive Date: 20110915
  Receipt Date: 20110906
  Transmission Date: 20111222
  Serious: Yes (Hospitalization, Other)
  Sender: FDA-Public Use
  Company Number: US-ASTRAZENECA-2011SE51601

PATIENT
  Age: 52 Year
  Sex: Female

DRUGS (2)
  1. TOPROL-XL [Suspect]
     Route: 048
     Dates: start: 20110301
  2. METOPROLOL TARTRATE [Suspect]
     Route: 065

REACTIONS (11)
  - EXTRASYSTOLES [None]
  - CARDIAC FAILURE CONGESTIVE [None]
  - HYPERVENTILATION [None]
  - OSTEOMYELITIS [None]
  - ARRHYTHMIA [None]
  - FALL [None]
  - ATRIAL FLUTTER [None]
  - OEDEMA PERIPHERAL [None]
  - LIMB INJURY [None]
  - DEVICE MALFUNCTION [None]
  - VENTRICULAR FAILURE [None]
